FAERS Safety Report 9217755 (Version 1)
Quarter: 2013Q2

REPORT INFORMATION
  Report Type: Spontaneous
  Country: FR (occurrence: FR)
  Receive Date: 20130408
  Receipt Date: 20130408
  Transmission Date: 20140414
  Serious: Yes (Hospitalization)
  Sender: FDA-Public Use
  Company Number: FR-BRISTOL-MYERS SQUIBB COMPANY-18731356

PATIENT
  Age: 91 Year
  Sex: Female

DRUGS (10)
  1. COAPROVEL TABS 300MG/ 25MG [Suspect]
     Indication: HYPERTENSION
     Dosage: LAST DOSE-29SEP2012
     Route: 048
     Dates: end: 20120929
  2. PAROXETINE [Suspect]
     Indication: DEPRESSION
     Dosage: LAST DOSE-28SEP2012
     Route: 048
     Dates: end: 20120928
  3. TEMERIT [Concomitant]
     Dosage: STOPPED ON UNK DATE
  4. KARDEGIC [Concomitant]
  5. DIAMICRON [Concomitant]
     Dosage: ON 30-SEP-2012, GLICLAZIDE WAS STOPPED.
  6. TEMESTA [Concomitant]
  7. SPASFON [Concomitant]
  8. PARACETAMOL [Concomitant]
  9. LANSOPRAZOLE [Concomitant]
     Route: 048
  10. ROCEPHINE [Concomitant]
     Indication: URINARY TRACT INFECTION
     Route: 042
     Dates: start: 20120929

REACTIONS (3)
  - Hyponatraemia [Recovered/Resolved]
  - Fall [Recovered/Resolved]
  - Rib fracture [Recovered/Resolved]
